FAERS Safety Report 5629236-9 (Version None)
Quarter: 2008Q1

REPORT INFORMATION
  Report Type: 
  Country: None (occurrence: None)
  Receive Date: 20080217
  Receipt Date: 20080129
  Transmission Date: 20080703
  Serious: No
  Sender: FDA-Public Use
  Company Number: US-BAXTER-2008BH000691

PATIENT
  Age: 53 Year
  Sex: Male

DRUGS (1)
  1. HEPARIN SODIUM [Suspect]
     Indication: PROPHYLAXIS
     Route: 065
     Dates: start: 20080107

REACTIONS (2)
  - ABDOMINAL DISTENSION [None]
  - PAIN [None]
